FAERS Safety Report 6283614-6 (Version None)
Quarter: 2009Q3

REPORT INFORMATION
  Report Type: 
  Country: None (occurrence: None)
  Receive Date: 20090724
  Receipt Date: 20090428
  Transmission Date: 20100115
  Serious: Yes (Hospitalization)
  Sender: FDA-Public Use
  Company Number: GB-ALEXION-A200900375

PATIENT

DRUGS (2)
  1. SOLIRIS [Suspect]
     Indication: MULTIFOCAL MOTOR NEUROPATHY
     Dosage: UNK
     Route: 042
     Dates: start: 20090422
  2. IMMUNE GLOBULIN INTRAVENOUS (HUMAN) [Suspect]
     Indication: MULTIFOCAL MOTOR NEUROPATHY
     Dosage: 100 G, UNK
     Route: 042
     Dates: start: 20090423, end: 20090424

REACTIONS (1)
  - MENINGITIS ASEPTIC [None]
